FAERS Safety Report 4413597-2 (Version None)
Quarter: 2004Q2

REPORT INFORMATION
  Report Type: 
  Country: None (occurrence: None)
  Receive Date: 20040630
  Receipt Date: 20040506
  Transmission Date: 20050107
  Serious: No
  Sender: FDA-Public Use
  Company Number: 04P-163-0259890-00

PATIENT
  Age: 65 Year
  Sex: Female
  Weight: 89.8122 kg

DRUGS (7)
  1. HUMIRA [Suspect]
     Indication: RHEUMATOID ARTHRITIS
     Dosage: 40 MG, 1 IN 2 WK, SUBCUTANEOUS
     Route: 058
     Dates: start: 20040328
  2. HYDROXYCHLOROQUINE PHOSPHATE [Concomitant]
  3. BUCINDOLOL HYDROCHLORIDE [Concomitant]
  4. LEXAPRO [Concomitant]
  5. VICODIN [Concomitant]
  6. CYCLOBENZAPRINE HYDROCHLORIDE [Concomitant]
  7. HORMONE REPLACEMENT [Concomitant]

REACTIONS (3)
  - INJECTION SITE HAEMORRHAGE [None]
  - INJECTION SITE PRURITUS [None]
  - INJECTION SITE SWELLING [None]
